FAERS Safety Report 8607487-9 (Version None)
Quarter: 2012Q3

REPORT INFORMATION
  Report Type: 
  Country: None (occurrence: None)
  Receive Date: 20120821
  Receipt Date: 20120815
  Transmission Date: 20120928
  Serious: Yes (Other)
  Sender: FDA-Public Use
  Company Number: BR-SANOFI-AVENTIS-2012SA058920

PATIENT
  Age: 82 Year
  Sex: Female
  Weight: 83 kg

DRUGS (13)
  1. AUTOPEN 24 [Suspect]
     Indication: DEVICE THERAPY
     Dates: start: 20080101
  2. SERTRALINE HYDROCHLORIDE [Concomitant]
     Indication: DEPRESSION
     Route: 048
     Dates: start: 20090101
  3. ASPIRIN [Concomitant]
     Route: 048
     Dates: start: 20080101
  4. LOSARTAN POTASSIUM [Concomitant]
     Indication: BLOOD PRESSURE
     Route: 048
     Dates: start: 20080101
  5. CHONDROITIN SULFATE/GLUCOSAMINE [Concomitant]
     Dosage: 1 SACHET DAILY
     Route: 048
     Dates: start: 20020101
  6. LANTUS [Suspect]
     Dosage: 3ML CATRIDGE
     Route: 058
     Dates: start: 20040101
  7. WARFARIN SODIUM [Concomitant]
     Dosage: DOSE ACCORDING TO NR
     Route: 048
     Dates: start: 20080101
  8. MULTI-VITAMINS [Concomitant]
     Route: 048
     Dates: start: 20120101
  9. METOPROLOL SUCCINATE [Concomitant]
     Indication: ARRHYTHMIA
     Route: 048
     Dates: start: 20120101
  10. GALVUS [Concomitant]
     Route: 048
     Dates: start: 20080101
  11. SYNTHROID [Concomitant]
     Indication: THYROID DISORDER
     Route: 048
     Dates: start: 19820101
  12. CLONAZEPAM [Concomitant]
     Indication: SEDATION
     Dosage: ACCORDING TO PATIENT'S EMOTIONAL STATE, FORM: DROPS
     Route: 048
     Dates: start: 20020101
  13. SIMVASTATIN [Concomitant]
     Route: 048
     Dates: start: 20040101

REACTIONS (3)
  - VEIN DISORDER [None]
  - HYPERGLYCAEMIA [None]
  - PNEUMONITIS [None]
